FAERS Safety Report 14725550 (Version 2)
Quarter: 2018Q2

REPORT INFORMATION
  Report Type: Report from Study
  Country: None (occurrence: AU)
  Receive Date: 20180406
  Receipt Date: 20180510
  Transmission Date: 20180711
  Serious: Yes (Other)
  Sender: FDA-Public Use
  Company Number: AU-ABBVIE-18K-008-2311307-00

PATIENT
  Age: 39 Year
  Sex: Male

DRUGS (2)
  1. HUMIRA [Suspect]
     Active Substance: ADALIMUMAB
     Indication: HIDRADENITIS
     Route: 058
     Dates: start: 201711
  2. HUMIRA [Suspect]
     Active Substance: ADALIMUMAB
     Route: 058

REACTIONS (8)
  - Mobility decreased [Unknown]
  - Fear of injection [Unknown]
  - Hidradenitis [Unknown]
  - Mass [Unknown]
  - Liver disorder [Not Recovered/Not Resolved]
  - Haematochezia [Not Recovered/Not Resolved]
  - Injection site pain [Unknown]
  - Abdominal pain upper [Not Recovered/Not Resolved]

NARRATIVE: CASE EVENT DATE: 201802
